FAERS Safety Report 11204751 (Version 1)
Quarter: 2015Q2

REPORT INFORMATION
  Report Type: Other
  Country: IN (occurrence: IN)
  Receive Date: 20150622
  Receipt Date: 20150622
  Transmission Date: 20150821
  Serious: Yes (Hospitalization)
  Sender: FDA-Public Use
  Company Number: IN-JUBILANT GENERICS LIMITED-1040094

PATIENT
  Age: 40 Year
  Sex: Female

DRUGS (2)
  1. AMISULPRIDE [Suspect]
     Active Substance: AMISULPRIDE
  2. OLANZAPINE. [Suspect]
     Active Substance: OLANZAPINE

REACTIONS (2)
  - Neuroleptic malignant syndrome [Recovered/Resolved]
  - Myxoedema coma [Recovered/Resolved]

NARRATIVE: CASE EVENT DATE: 20150611
